FAERS Safety Report 22368966 (Version 1)
Quarter: 2023Q2

REPORT INFORMATION
  Report Type: Spontaneous
  Country: SI (occurrence: SI)
  Receive Date: 20230525
  Receipt Date: 20230525
  Transmission Date: 20230722
  Serious: Yes (Death, Other)
  Sender: FDA-Public Use
  Company Number: SI-009507513-2305SVN006917

PATIENT
  Age: 59 Year
  Sex: Male

DRUGS (3)
  1. PEMBROLIZUMAB [Suspect]
     Active Substance: PEMBROLIZUMAB
     Indication: Oropharyngeal cancer
     Dosage: 200 MILLIGRAM, Q3W(ONLY ONE CYCLE ADMINISTERED)
     Route: 042
     Dates: start: 20210512, end: 20210512
  2. CISPLATIN [Suspect]
     Active Substance: CISPLATIN
     Indication: Oropharyngeal cancer
     Dosage: 100 MILLIGRAM/SQ. METER (ONLY ONE DOSE ADMINISTERED)
     Dates: start: 20210512, end: 20210512
  3. FLUOROURACIL [Suspect]
     Active Substance: FLUOROURACIL
     Indication: Oropharyngeal cancer
     Dosage: 1000 MILLIGRAM/SQ. METER (ONLY ONE DOSE ADMINISTERED)
     Dates: start: 20210512, end: 20210512

REACTIONS (5)
  - Hepatic encephalopathy [Fatal]
  - Mechanical ileus [Fatal]
  - Malignant neoplasm progression [Unknown]
  - Hypotension [Unknown]
  - Infection [Unknown]

NARRATIVE: CASE EVENT DATE: 20210101
